FAERS Safety Report 12516880 (Version 4)
Quarter: 2016Q4

REPORT INFORMATION
  Report Type: Report from Study
  Country: DE (occurrence: DE)
  Receive Date: 20160630
  Receipt Date: 20161007
  Transmission Date: 20170207
  Serious: Yes (Other)
  Sender: FDA-Public Use
  Company Number: DE-ROCHE-1783308

PATIENT
  Age: 82 Year
  Sex: Female
  Weight: 61 kg

DRUGS (15)
  1. BENDAMUSTINE [Suspect]
     Active Substance: BENDAMUSTINE
     Dosage: CYCLE 2 DEBULKING DOSE
     Route: 042
     Dates: start: 20150509, end: 20150509
  2. CHOLECALCIFEROL [Concomitant]
     Active Substance: CHOLECALCIFEROL
     Route: 065
  3. ALLOPURINOL. [Concomitant]
     Active Substance: ALLOPURINOL
     Route: 065
  4. BENDAMUSTINE [Suspect]
     Active Substance: BENDAMUSTINE
     Indication: CHRONIC LYMPHOCYTIC LEUKAEMIA
     Dosage: CYCLE 1 DEBULKING DOSE
     Route: 042
     Dates: start: 20150409
  5. ALENDRONATE [Concomitant]
     Active Substance: ALENDRONATE SODIUM
     Route: 065
  6. METOPROLOL. [Concomitant]
     Active Substance: METOPROLOL
     Dosage: 23 MG AND 75 MG
     Route: 065
  7. PENTOXYFYLLINE [Concomitant]
     Route: 065
  8. RAMIPRIL. [Concomitant]
     Active Substance: RAMIPRIL
     Dosage: 2 MG AND 5 MG
     Route: 065
  9. OBINUTUZUMAB [Suspect]
     Active Substance: OBINUTUZUMAB
     Dosage: MAINTENANCE DOSE?MOST RECENT DOSE PRIOR TO SAE: 31/MAR/2016
     Route: 042
     Dates: end: 20160331
  10. ACETYLSALICYLIC ACID [Concomitant]
     Active Substance: ASPIRIN
     Route: 065
  11. IBRUTINIB [Suspect]
     Active Substance: IBRUTINIB
     Indication: CHRONIC LYMPHOCYTIC LEUKAEMIA
     Dosage: MAINTENANCE DOSE ?DATE OF MOST RECENT DOSE: 22/JUN/2016
     Route: 048
     Dates: start: 20150630, end: 20160622
  12. FUROSEMID [Concomitant]
     Active Substance: FUROSEMIDE
     Route: 065
     Dates: end: 20160622
  13. OBINUTUZUMAB [Suspect]
     Active Substance: OBINUTUZUMAB
     Indication: CHRONIC LYMPHOCYTIC LEUKAEMIA
     Dosage: INDUCTION DOSE
     Route: 042
     Dates: start: 20150602
  14. HYDROCHLOROTHIAZIDE. [Concomitant]
     Active Substance: HYDROCHLOROTHIAZIDE
     Dosage: 12 MG AND 5 MG
     Route: 065
     Dates: end: 20160622
  15. PANTOPRAZOLE [Concomitant]
     Active Substance: PANTOPRAZOLE SODIUM
     Route: 065

REACTIONS (1)
  - Basal cell carcinoma [Recovered/Resolved]

NARRATIVE: CASE EVENT DATE: 20160622
